FAERS Safety Report 20404854 (Version 1)
Quarter: 2022Q1

REPORT INFORMATION
  Report Type: Spontaneous
  Country: DE (occurrence: DE)
  Receive Date: 20220131
  Receipt Date: 20220131
  Transmission Date: 20220423
  Serious: Yes (Hospitalization, Other)
  Sender: FDA-Public Use
  Company Number: DE-NOVARTISPH-NVSC2020DE360677

PATIENT
  Age: 79 Year
  Sex: Female
  Weight: 70 kg

DRUGS (7)
  1. ELTROMBOPAG OLAMINE [Suspect]
     Active Substance: ELTROMBOPAG OLAMINE
     Indication: Thrombocytopenia
     Dosage: 50 MG, QD ( 1-0-0)
     Route: 065
     Dates: start: 20180426, end: 201805
  2. ELTROMBOPAG OLAMINE [Suspect]
     Active Substance: ELTROMBOPAG OLAMINE
     Indication: Aplastic anaemia
     Dosage: 75 MG, QD  (1-0-0)
     Route: 065
     Dates: start: 20180516, end: 2018
  3. ELTROMBOPAG OLAMINE [Suspect]
     Active Substance: ELTROMBOPAG OLAMINE
     Dosage: 150 MG, QD (1-0-0)
     Route: 065
     Dates: start: 201806, end: 2018
  4. CYCLOSPORINE [Suspect]
     Active Substance: CYCLOSPORINE
     Indication: Thrombocytopenia
     Dosage: 250 MG, BID (1-0-1)
     Route: 048
     Dates: start: 20180426, end: 201805
  5. CYCLOSPORINE [Suspect]
     Active Substance: CYCLOSPORINE
     Indication: Aplastic anaemia
     Dosage: 250 MG, BID (1-0-1)
     Route: 048
     Dates: start: 201805, end: 2018
  6. CYCLOSPORINE [Suspect]
     Active Substance: CYCLOSPORINE
     Dosage: 150 MG, BID (1-0-1)
     Route: 048
     Dates: start: 201806, end: 2018
  7. CYCLOSPORINE [Suspect]
     Active Substance: CYCLOSPORINE
     Dosage: 50 MG, 3-0-2
     Route: 048
     Dates: start: 2018

REACTIONS (7)
  - Fall [Unknown]
  - Arthralgia [Unknown]
  - Pelvic pain [Unknown]
  - Spinal pain [Unknown]
  - General physical health deterioration [Unknown]
  - Intervertebral discitis [Unknown]
  - Asthenia [Unknown]

NARRATIVE: CASE EVENT DATE: 20180101
